FAERS Safety Report 9057917 (Version 1)
Quarter: 2013Q1

REPORT INFORMATION
  Report Type: Spontaneous
  Country: GB (occurrence: GB)
  Receive Date: 20130210
  Receipt Date: 20130210
  Transmission Date: 20140127
  Serious: Yes (Other)
  Sender: FDA-Public Use
  Company Number: GB-TEVA-383953ISR

PATIENT
  Age: 33 Year
  Sex: Male
  Weight: 77.8 kg

DRUGS (10)
  1. TRAZODONE [Suspect]
     Dates: start: 20130111
  2. METHADONE [Concomitant]
     Dates: start: 20121016
  3. DIAZEPAM [Concomitant]
     Dates: start: 20121127
  4. CLONIDINE [Concomitant]
     Dates: start: 20120924
  5. GLICLAZIDE [Concomitant]
     Dates: start: 20120924
  6. METFORMIN [Concomitant]
     Dates: start: 20120924
  7. MIRTAZAPINE [Concomitant]
     Dates: start: 20120924, end: 20130107
  8. TEMAZEPAM [Concomitant]
     Dates: start: 20121019, end: 20130118
  9. TRAMADOL [Concomitant]
     Dates: start: 20121019, end: 20130121
  10. AMOXICILLIN [Concomitant]
     Dates: start: 20121231, end: 20130107

REACTIONS (4)
  - Wheezing [Recovered/Resolved]
  - Chest discomfort [Recovered/Resolved]
  - Fatigue [Recovered/Resolved]
  - Dyspnoea [Unknown]
